FAERS Safety Report 24582594 (Version 1)
Quarter: 2024Q4

REPORT INFORMATION
  Report Type: Spontaneous
  Country: GB (occurrence: GB)
  Receive Date: 20241106
  Receipt Date: 20241106
  Transmission Date: 20250114
  Serious: Yes (Hospitalization, Other)
  Sender: TEVA
  Company Number: None

PATIENT
  Age: 81 Year
  Sex: Male

DRUGS (14)
  1. POSACONAZOLE [Suspect]
     Active Substance: POSACONAZOLE
     Indication: Product used for unknown indication
     Route: 065
  2. GLICLAZIDE [Concomitant]
     Active Substance: GLICLAZIDE
     Indication: Product used for unknown indication
     Dosage: 40 MG TABLETS ONE TO BE TAKEN WITH EVENING MEAL
     Route: 065
  3. LOSARTAN [Concomitant]
     Active Substance: LOSARTAN
     Indication: Product used for unknown indication
     Dosage: 25 MG TABLETS ONE TO BE TAKEN EACH DAY
     Route: 065
  4. AMITRIPTYLINE [Concomitant]
     Active Substance: AMITRIPTYLINE
     Indication: Product used for unknown indication
     Dosage: 10 MG TABLETS TWO TO BE TAKEN AT NIGHT, DAILY DOSE: 20 MG
     Route: 065
  5. ATORVASTATIN [Concomitant]
     Active Substance: ATORVASTATIN
     Indication: Product used for unknown indication
     Dosage: 20 MG TABLETS ONE TO BE TAKEN EACH DAY - NOT PRESCRIBED, INTERACTION WITH POSACONAZOLE
     Route: 065
  6. Xismox XL [Concomitant]
     Indication: Product used for unknown indication
     Dosage: 60MG TABLETS TWO TO BE TAKEN EACH MORNING, DAILY DOSE: 120 MG
  7. APIXABAN [Suspect]
     Active Substance: APIXABAN
     Indication: Product used for unknown indication
     Dosage: 2.5 MG TABLETS ONE TO BE TAKEN TWICE A DAY - NOT PRESCRIBED, INTERACTION WITH POSACONAZOLE, DAILY...
     Route: 065
  8. LINAGLIPTIN [Concomitant]
     Active Substance: LINAGLIPTIN
     Indication: Product used for unknown indication
     Dosage: 5 MG TABLETS ONE TO BE TAKEN EACH DAY
     Route: 065
  9. LANSOPRAZOLE [Concomitant]
     Active Substance: LANSOPRAZOLE
     Indication: Product used for unknown indication
     Dosage: 15 MG GASTRO-RESISTANT CAPSULES ONE TO BE TAKEN EACH MORNING, DAILY DOSE: 15MG
     Route: 065
  10. BISOPROLOL [Concomitant]
     Active Substance: BISOPROLOL\BISOPROLOL FUMARATE
     Indication: Product used for unknown indication
     Dosage: 1.25 MG TABLETS ONE TO BE TAKEN EACH DAY - INCREASED TO 2.5MG OD
     Route: 065
     Dates: end: 20241023
  11. NICORANDIL [Concomitant]
     Active Substance: NICORANDIL
     Indication: Product used for unknown indication
     Dosage: 20 MG TABLETS ONE TO BE TAKEN TWICE A DAY, DAILY DOSE: 40MG
     Route: 065
  12. FERROUS SULFATE [Concomitant]
     Active Substance: FERROUS SULFATE
     Indication: Product used for unknown indication
     Dosage: 200 MG TABLETS ONE TO BE TAKEN EACH DAY AT LUNCHTIME, DAILY DOSE: 200MG
     Route: 065
  13. TAMSULOSIN [Concomitant]
     Active Substance: TAMSULOSIN
     Indication: Product used for unknown indication
     Dosage: 400 MICROGRAM MODIFIED-RELEASE CAPSULES ONE TO BE TAKEN EACH DAY
  14. SENNA [Concomitant]
     Active Substance: SENNA LEAF\SENNOSIDES\SENNOSIDES A AND B
     Indication: Product used for unknown indication
     Dosage: 7.5 MG TABLETS ONE OR TWO TO BE TAKEN AT NIGHT

REACTIONS (1)
  - Haemoptysis [Recovered/Resolved]
